FAERS Safety Report 4297096-7 (Version None)
Quarter: 2004Q1

REPORT INFORMATION
  Report Type: 
  Country: None (occurrence: None)
  Receive Date: 20040126
  Receipt Date: 20030903
  Transmission Date: 20041129
  Serious: No
  Sender: FDA-Public Use
  Company Number: USA030946083

PATIENT
  Age: 16 Year
  Sex: Male
  Weight: 82 kg

DRUGS (2)
  1. STRATTERA [Suspect]
     Indication: ATTENTION DEFICIT/HYPERACTIVITY DISORDER
     Dosage: 40 MG/DAY
     Dates: start: 20030801
  2. PAXIL [Concomitant]

REACTIONS (7)
  - ABNORMAL BEHAVIOUR [None]
  - CRYING [None]
  - DEPRESSION [None]
  - DEPRESSION SUICIDAL [None]
  - EMOTIONAL DISTRESS [None]
  - PILOERECTION [None]
  - STREPTOCOCCAL INFECTION [None]
